FAERS Safety Report 5676098-X (Version None)
Quarter: 2008Q1

REPORT INFORMATION
  Report Type: 
  Country: None (occurrence: None)
  Receive Date: 20080321
  Receipt Date: 20080313
  Transmission Date: 20080703
  Serious: Yes (Death, Hospitalization)
  Sender: FDA-Public Use
  Company Number: US-PURDUE-USA_2008_0031276

PATIENT
  Age: 45 Year
  Sex: Male

DRUGS (4)
  1. OXYCONTIN [Suspect]
     Indication: PAIN
     Dosage: 320 MG, BID
     Route: 048
  2. OXYCODONE HCL [Concomitant]
     Indication: BREAKTHROUGH PAIN
     Dosage: 30 MG, UNK
     Route: 048
  3. FENTANYL [Concomitant]
     Indication: BREAKTHROUGH PAIN
     Dosage: UNK, UNK
     Route: 048
  4. LASIX [Concomitant]
     Indication: DRUG USE FOR UNKNOWN INDICATION
     Dosage: UNK, UNK
     Route: 048

REACTIONS (20)
  - ACUTE MYOCARDIAL INFARCTION [None]
  - ADRENAL NEOPLASM [None]
  - CARDIAC FAILURE CONGESTIVE [None]
  - CHILLS [None]
  - CHRONIC OBSTRUCTIVE PULMONARY DISEASE [None]
  - DEEP VEIN THROMBOSIS [None]
  - FLUID OVERLOAD [None]
  - INADEQUATE ANALGESIA [None]
  - INFECTION [None]
  - LYMPHADENOPATHY [None]
  - MALAISE [None]
  - NEPHROPATHY [None]
  - PULMONARY EMBOLISM [None]
  - RIGHT VENTRICULAR DYSFUNCTION [None]
  - SINUS DISORDER [None]
  - SLEEP APNOEA SYNDROME [None]
  - SOMNOLENCE [None]
  - TREMOR [None]
  - TYPE 2 DIABETES MELLITUS [None]
  - VENOUS STASIS [None]
